FAERS Safety Report 21543606 (Version 1)
Quarter: 2022Q4

REPORT INFORMATION
  Report Type: Spontaneous
  Country: US (occurrence: US)
  Receive Date: 20221102
  Receipt Date: 20221102
  Transmission Date: 20230113
  Serious: Yes (Hospitalization)
  Sender: FDA-Public Use
  Company Number: US-MYLANLABS-2022M1119424

PATIENT
  Age: 57 Year
  Sex: Male

DRUGS (8)
  1. HALOPERIDOL [Suspect]
     Active Substance: HALOPERIDOL
     Indication: Drug withdrawal syndrome
     Dosage: UNK
     Route: 065
  2. ZIPRASIDONE [Suspect]
     Active Substance: ZIPRASIDONE
     Indication: Drug withdrawal syndrome
     Dosage: UNK
     Route: 065
  3. FENTANYL [Suspect]
     Active Substance: FENTANYL
     Indication: Drug withdrawal syndrome
     Dosage: INFUSION
     Route: 065
  4. HYDRALAZINE [Suspect]
     Active Substance: HYDRALAZINE HYDROCHLORIDE
     Indication: Drug withdrawal syndrome
     Dosage: UNK
     Route: 065
  5. PROPOFOL [Suspect]
     Active Substance: PROPOFOL
     Indication: Drug withdrawal syndrome
     Dosage: INFUSION
     Route: 065
  6. MIDAZOLAM [Suspect]
     Active Substance: MIDAZOLAM
     Indication: Drug withdrawal syndrome
     Dosage: INFUSION
     Route: 065
  7. BACLOFEN [Concomitant]
     Active Substance: BACLOFEN
     Indication: Drug withdrawal syndrome
     Dosage: UNK
     Route: 065
  8. LORAZEPAM [Concomitant]
     Active Substance: LORAZEPAM
     Indication: Drug withdrawal syndrome
     Dosage: UNK
     Route: 065

REACTIONS (2)
  - Drug ineffective for unapproved indication [Unknown]
  - Off label use [Unknown]
